FAERS Safety Report 4399778-5 (Version None)
Quarter: 2004Q3

REPORT INFORMATION
  Report Type: 
  Country: None (occurrence: None)
  Receive Date: 20040714
  Receipt Date: 20040701
  Transmission Date: 20050211
  Serious: No
  Sender: FDA-Public Use
  Company Number: 04P-087-0263345-00

PATIENT
  Age: 71 Year
  Sex: Male

DRUGS (9)
  1. LIPANTIL (TRICOR) (FENOFIBRATE) (FENOFIBRATE) [Suspect]
     Indication: HYPERLIPIDAEMIA
     Dosage: 150 MG, 2 IN 1 D, ORAL
     Route: 048
     Dates: start: 20040329, end: 20040425
  2. ASPIRIN [Concomitant]
  3. DIGOXIN [Concomitant]
  4. FUROSEMIDE [Concomitant]
  5. TANATRIL [Concomitant]
  6. NICORANDIL [Concomitant]
  7. FAMOTIDINE [Concomitant]
  8. ALLOPURINOL [Concomitant]
  9. CALCIUM POLYSTYRENE SULFOANTE [Concomitant]

REACTIONS (3)
  - BLOOD GLUCOSE INCREASED [None]
  - HEPATIC FUNCTION ABNORMAL [None]
  - RENAL IMPAIRMENT [None]
